FAERS Safety Report 20631623 (Version 8)
Quarter: 2024Q4

REPORT INFORMATION
  Report Type: Spontaneous
  Country: US (occurrence: US)
  Receive Date: 20220324
  Receipt Date: 20241113
  Transmission Date: 20250115
  Serious: No
  Sender: BIOGEN
  Company Number: US-BIOGEN-2021BI01063280

PATIENT
  Sex: Female

DRUGS (21)
  1. VUMERITY [Suspect]
     Active Substance: DIROXIMEL FUMARATE
     Indication: Multiple sclerosis
     Dosage: TAKE 2 CAPSULES (462MG) BY MOUTH TWICE DAILY
     Route: 050
     Dates: start: 20201125
  2. MELOXICAM [Concomitant]
     Active Substance: MELOXICAM
     Route: 050
  3. LOSARTAN POTASSIUM/HYDROC [Concomitant]
     Route: 050
  4. BUPROPION HYDROCHLORIDE SR [Concomitant]
     Active Substance: BUPROPION HYDROCHLORIDE
     Route: 050
  5. TRAMADOL HCL [Concomitant]
     Active Substance: TRAMADOL HYDROCHLORIDE
     Route: 050
  6. VITAMIN D3 [Concomitant]
     Active Substance: CHOLECALCIFEROL
     Route: 050
  7. ASPIRIN [Concomitant]
     Active Substance: ASPIRIN
     Route: 050
  8. BIOTIN [Concomitant]
     Active Substance: BIOTIN
     Route: 050
  9. MYRBETRIQ [Concomitant]
     Active Substance: MIRABEGRON
     Route: 050
  10. OXYBUTYNIN CHLORIDE [Concomitant]
     Active Substance: OXYBUTYNIN CHLORIDE
     Route: 050
  11. FUROSEMIDE [Concomitant]
     Active Substance: FUROSEMIDE
     Route: 050
  12. TOLTERODINE TARTRATE [Concomitant]
     Active Substance: TOLTERODINE TARTRATE
     Route: 050
  13. METOLAZONE [Concomitant]
     Active Substance: METOLAZONE
     Route: 050
  14. LEXAPRO [Concomitant]
     Active Substance: ESCITALOPRAM OXALATE
     Route: 050
  15. VITAMIN C [Concomitant]
     Active Substance: ASCORBIC ACID
     Route: 050
  16. VITAMIN B12 [Concomitant]
     Active Substance: CYANOCOBALAMIN
     Route: 050
  17. TYLENOL [Concomitant]
     Active Substance: ACETAMINOPHEN
     Route: 050
  18. METHENAMINE [Concomitant]
     Active Substance: METHENAMINE
     Route: 050
  19. ESCITALOPRAM [Concomitant]
     Active Substance: ESCITALOPRAM OXALATE
     Route: 050
  20. ASPIRIN [Concomitant]
     Active Substance: ASPIRIN
     Route: 050
  21. GABAPENTIN [Concomitant]
     Active Substance: GABAPENTIN
     Route: 050

REACTIONS (27)
  - Product dose omission in error [Not Recovered/Not Resolved]
  - Product dose omission issue [Unknown]
  - Arthralgia [Not Recovered/Not Resolved]
  - Balance disorder [Not Recovered/Not Resolved]
  - Spinal stenosis [Not Recovered/Not Resolved]
  - Neuropathy peripheral [Not Recovered/Not Resolved]
  - Multiple sclerosis relapse [Not Recovered/Not Resolved]
  - Fatigue [Not Recovered/Not Resolved]
  - Neuralgia [Not Recovered/Not Resolved]
  - Disturbance in attention [Not Recovered/Not Resolved]
  - Tremor [Not Recovered/Not Resolved]
  - Memory impairment [Not Recovered/Not Resolved]
  - Aphasia [Not Recovered/Not Resolved]
  - Infrequent bowel movements [Not Recovered/Not Resolved]
  - Bradykinesia [Not Recovered/Not Resolved]
  - Viral infection [Not Recovered/Not Resolved]
  - Paraesthesia [Not Recovered/Not Resolved]
  - Hypoaesthesia [Not Recovered/Not Resolved]
  - Vitamin B complex deficiency [Not Recovered/Not Resolved]
  - Gait inability [Not Recovered/Not Resolved]
  - Back pain [Not Recovered/Not Resolved]
  - Visual impairment [Not Recovered/Not Resolved]
  - Motor dysfunction [Not Recovered/Not Resolved]
  - Hypokinesia [Not Recovered/Not Resolved]
  - Urinary tract infection [Not Recovered/Not Resolved]
  - Bladder spasm [Recovered/Resolved]
  - Fall [Recovered/Resolved]

NARRATIVE: CASE EVENT DATE: 20210101
